FAERS Safety Report 8404736-7 (Version None)
Quarter: 2012Q2

REPORT INFORMATION
  Report Type: 
  Country: None (occurrence: None)
  Receive Date: 20120601
  Receipt Date: 20120530
  Transmission Date: 20120825
  Serious: No
  Sender: FDA-Public Use
  Company Number: US-PFIZER INC-2012131120

PATIENT
  Sex: Female
  Weight: 98 kg

DRUGS (4)
  1. LYRICA [Suspect]
     Indication: PERIPHERAL NERVE INJURY
     Dosage: 150 MG, 1X/DAY
     Route: 048
     Dates: start: 20120201
  2. LYRICA [Suspect]
     Indication: WRIST FRACTURE
     Dosage: 75 MG, DAILY
     Dates: start: 20120101, end: 20120301
  3. NEURONTIN [Suspect]
     Indication: PERIPHERAL NERVE INJURY
     Dosage: 100 MG, AS NEEDED
     Dates: start: 20120306, end: 20120301
  4. NEURONTIN [Suspect]
     Indication: WRIST FRACTURE

REACTIONS (5)
  - DRUG INTOLERANCE [None]
  - SOMNOLENCE [None]
  - DIZZINESS [None]
  - FEELING DRUNK [None]
  - VISION BLURRED [None]
